FAERS Safety Report 6891081-4 (Version None)
Quarter: 2010Q3

REPORT INFORMATION
  Report Type: 
  Country: None (occurrence: None)
  Receive Date: 20100731
  Receipt Date: 20090524
  Transmission Date: 20110219
  Serious: No
  Sender: FDA-Public Use
  Company Number: US-PFIZER INC-2009178995

PATIENT
  Sex: Male
  Weight: 86.2 kg

DRUGS (3)
  1. LIPITOR [Suspect]
     Indication: BLOOD CHOLESTEROL INCREASED
     Dosage: 40 MG, 1X/DAY
     Dates: start: 20080101
  2. PLAVIX [Concomitant]
     Dosage: 75 MG, UNK
  3. LISINOPRIL [Concomitant]
     Dosage: 5 MG, UNK

REACTIONS (1)
  - MYALGIA [None]
